FAERS Safety Report 5540636-8 (Version None)
Quarter: 2007Q4

REPORT INFORMATION
  Report Type: 
  Country: None (occurrence: None)
  Receive Date: 20071129
  Receipt Date: 20070719
  Transmission Date: 20080405
  Serious: Yes (Other)
  Sender: FDA-Public Use
  Company Number: US200707004878

PATIENT
  Age: 46 Year
  Sex: Female

DRUGS (3)
  1. ZYPREXA [Suspect]
     Indication: BIPOLAR I DISORDER
  2. LITHIUM CARBONATE [Concomitant]
  3. CLONOPIN [Concomitant]

REACTIONS (5)
  - FOOD ALLERGY [None]
  - MILK ALLERGY [None]
  - PAIN [None]
  - PANCREATITIS [None]
  - SWELLING [None]
